FAERS Safety Report 15274121 (Version 4)
Quarter: 2021Q2

REPORT INFORMATION
  Report Type: Report from Study
  Country: FR (occurrence: FR)
  Receive Date: 20180814
  Receipt Date: 20210513
  Transmission Date: 20210716
  Serious: Yes (Hospitalization)
  Sender: FDA-Public Use
  Company Number: FR-ROCHE-2167793

PATIENT
  Age: 85 Year
  Sex: Male
  Weight: 62 kg

DRUGS (5)
  1. CYCLOPHOSPHAMIDE. [Suspect]
     Active Substance: CYCLOPHOSPHAMIDE
     Indication: MANTLE CELL LYMPHOMA
     Dosage: ADMINISTERED IN 3 WEEK CYCLES FOR 8 CYCLES?LAST DOSE PRIOR TO SAE: 13/OCT/2017
     Route: 065
     Dates: start: 20170505
  2. DOXORUBICIN [Suspect]
     Active Substance: DOXORUBICIN
     Indication: MANTLE CELL LYMPHOMA
     Dosage: ADMINISTERED IN 3 WEEK CYCLES FOR 8 CYCLES?LAST DOSE PRIOR TO SAE: 13/OCT/2017
     Route: 065
     Dates: start: 20170505
  3. VINCRISTINE [Suspect]
     Active Substance: VINCRISTINE
     Indication: MANTLE CELL LYMPHOMA
     Dosage: ADMINISTERED IN 3 WEEK CYCLES FOR 8 CYCLES?LAST DOSE PRIOR TO SAE: 13/OCT/2017
     Route: 065
     Dates: start: 20170505
  4. RITUXIMAB. [Suspect]
     Active Substance: RITUXIMAB
     Indication: MANTLE CELL LYMPHOMA
     Dosage: ADMINISTERED IN 3 WEEK CYCLES FOR 8 CYCLES?LAST DOSE PRIOR TO SAE: 13/OCT/2017
     Route: 065
     Dates: start: 20170505
  5. PREDNISONE. [Suspect]
     Active Substance: PREDNISONE
     Indication: MANTLE CELL LYMPHOMA
     Dosage: ADMINISTERED IN 3 WEEK CYCLES FOR 8 CYCLES?LAST DOSE PRIOR TO SAE: 13/OCT/2017
     Route: 065
     Dates: start: 20170505

REACTIONS (2)
  - Cholecystitis [Recovered/Resolved]
  - Bacterial colitis [Recovered/Resolved]

NARRATIVE: CASE EVENT DATE: 20170913
